FAERS Safety Report 9157532 (Version 1)
Quarter: 2013Q1

REPORT INFORMATION
  Report Type: Spontaneous
  Country: US (occurrence: None)
  Receive Date: 20130219
  Receipt Date: 20130219
  Transmission Date: 20140127
  Serious: Yes (Other)
  Sender: FDA-Public Use
  Company Number: ACO_33796_2013

PATIENT
  Age: 62 Year
  Sex: Female

DRUGS (1)
  1. AMPYRA [Suspect]
     Indication: MULTIPLE SCLEROSIS
     Route: 048
     Dates: start: 201212

REACTIONS (5)
  - Pruritus [None]
  - Swollen tongue [None]
  - Rash erythematous [None]
  - Generalised erythema [None]
  - Inappropriate schedule of drug administration [None]
